FAERS Safety Report 5286833-0 (Version None)
Quarter: 2007Q2

REPORT INFORMATION
  Report Type: 
  Country: None (occurrence: None)
  Receive Date: 20070404
  Receipt Date: 20070329
  Transmission Date: 20071010
  Serious: Yes (Hospitalization)
  Sender: FDA-Public Use
  Company Number: GB-ROXANE LABORATORIES, INC-2007-BP-04372RO

PATIENT
  Age: 38 Year
  Sex: Female

DRUGS (1)
  1. CHLORPROMAZINE [Suspect]
     Indication: SCHIZOAFFECTIVE DISORDER
     Dosage: 100 MG/DAY
     Route: 048

REACTIONS (9)
  - ACTIVATED PARTIAL THROMBOPLASTIN TIME PROLONGED [None]
  - ANTIPHOSPHOLIPID ANTIBODIES [None]
  - ANTIPHOSPHOLIPID SYNDROME [None]
  - CONFUSIONAL STATE [None]
  - GRAND MAL CONVULSION [None]
  - KAOLIN CEPHALIN CLOTTING TIME PROLONGED [None]
  - RUSSELL'S VIPER VENOM TIME ABNORMAL [None]
  - STATUS EPILEPTICUS [None]
  - THROMBOCYTOPENIA [None]
